FAERS Safety Report 8932069 (Version 2)
Quarter: 2012Q4

REPORT INFORMATION
  Report Type: 
  Country: HU (occurrence: HU)
  Receive Date: 20121128
  Receipt Date: 20121206
  Transmission Date: 20130627
  Serious: Yes (Other)
  Sender: FDA-Public Use
  Company Number: HU-PFIZER INC-2012294737

PATIENT
  Age: 48 Year
  Sex: Male

DRUGS (4)
  1. AMLODIPINE BESILATE [Suspect]
     Indication: HYPERTENSION
     Dosage: 5 mg, 1x/day
  2. ATORVASTATIN CALCIUM [Suspect]
     Indication: LIPIDS NOS ABNORMAL
     Dosage: 20 mg, 1x/day in the evening
  3. BISOPROLOL FUMARATE [Suspect]
     Indication: HYPERTENSION
     Dosage: 5 mg, 1x/day in the morning
  4. ENALAPRIL [Suspect]
     Indication: HYPERTENSION
     Dosage: 20 mg, 2x/day

REACTIONS (5)
  - Hypertension [Recovered/Resolved]
  - Oedema peripheral [Recovered/Resolved]
  - Malaise [Recovered/Resolved]
  - Headache [Recovered/Resolved]
  - Dizziness [Recovered/Resolved]
